FAERS Safety Report 23913439 (Version 1)
Quarter: 2024Q2

REPORT INFORMATION
  Report Type: Report from Study
  Country: US (occurrence: US)
  Receive Date: 20240529
  Receipt Date: 20240529
  Transmission Date: 20240716
  Serious: Yes (Hospitalization, Other)
  Sender: FDA-Public Use
  Company Number: US-ABBVIE-5771802

PATIENT
  Age: 60 Year
  Sex: Female
  Weight: 81.646 kg

DRUGS (14)
  1. SKYRIZI [Suspect]
     Active Substance: RISANKIZUMAB-RZAA
     Indication: Crohn^s disease
     Route: 042
     Dates: start: 20240515
  2. SKYRIZI [Suspect]
     Active Substance: RISANKIZUMAB-RZAA
     Indication: Crohn^s disease
     Dosage: FORM STRENGTH: 180 MG
     Route: 042
     Dates: start: 20240411, end: 20240411
  3. SKYRIZI [Suspect]
     Active Substance: RISANKIZUMAB-RZAA
     Indication: Crohn^s disease
     Dosage: FORM STRENGTH: 180 MG
     Route: 042
     Dates: start: 20240509, end: 20240509
  4. SKYRIZI [Suspect]
     Active Substance: RISANKIZUMAB-RZAA
     Indication: Crohn^s disease
     Dosage: FORM STRENGTH: 180 MG
     Route: 042
     Dates: start: 20240315, end: 20240315
  5. PREDNISONE [Concomitant]
     Active Substance: PREDNISONE
     Indication: Iritis
  6. LOMOTIL [Concomitant]
     Active Substance: ATROPINE SULFATE\DIPHENOXYLATE HYDROCHLORIDE
     Indication: Diarrhoea
  7. PEPCID [Concomitant]
     Active Substance: FAMOTIDINE
     Indication: Gastrooesophageal reflux disease
  8. LISINOPRIL [Concomitant]
     Active Substance: LISINOPRIL
     Indication: Blood pressure measurement
  9. REMERON [Concomitant]
     Active Substance: MIRTAZAPINE
     Indication: Depression
  10. PROTONIX [Concomitant]
     Active Substance: PANTOPRAZOLE SODIUM
     Indication: Gastrooesophageal reflux disease
  11. TRAZODONE [Concomitant]
     Active Substance: TRAZODONE HYDROCHLORIDE
     Indication: Depression
  12. METOPROLOL [Concomitant]
     Active Substance: METOPROLOL
     Indication: Tachycardia
  13. ZOFRAN [Concomitant]
     Active Substance: ONDANSETRON HYDROCHLORIDE
     Indication: Nausea
  14. ATIVAN [Concomitant]
     Active Substance: LORAZEPAM
     Indication: Anxiety

REACTIONS (1)
  - Scar [Not Recovered/Not Resolved]

NARRATIVE: CASE EVENT DATE: 20240515
